FAERS Safety Report 25780061 (Version 1)
Quarter: 2025Q3

REPORT INFORMATION
  Report Type: Spontaneous
  Country: GB (occurrence: GB)
  Receive Date: 20250909
  Receipt Date: 20250909
  Transmission Date: 20251020
  Serious: Yes (Other)
  Sender: AMGEN
  Company Number: GB-AMGEN-GBRSP2025175875

PATIENT

DRUGS (1)
  1. ADALIMUMAB [Suspect]
     Active Substance: ADALIMUMAB
     Indication: Crohn^s disease
     Route: 065

REACTIONS (6)
  - Crohn^s disease [Unknown]
  - Cutaneous vasculitis [Unknown]
  - Lower respiratory tract infection [Unknown]
  - Drug level abnormal [Unknown]
  - Alopecia [Unknown]
  - Drug ineffective [Unknown]
